FAERS Safety Report 14391677 (Version 1)
Quarter: 2018Q1

REPORT INFORMATION
  Report Type: Spontaneous
  Country: CN (occurrence: CN)
  Receive Date: 20180116
  Receipt Date: 20180116
  Transmission Date: 20180509
  Serious: Yes (Hospitalization)
  Sender: FDA-Public Use
  Company Number: PHHY2018CN004540

PATIENT
  Age: 32 Year
  Sex: Female

DRUGS (3)
  1. LETROZOLE. [Suspect]
     Active Substance: LETROZOLE
     Indication: OVULATION INDUCTION
     Route: 065
  2. FOLLICLE-STIMULATING HORMONE, HUMAN (UROFOLLITROPIN) [Suspect]
     Active Substance: UROFOLLITROPIN
     Indication: OVULATION INDUCTION
     Route: 065
  3. HUMAN MENOPAUSAL GONADOTROPHIN [Suspect]
     Active Substance: GONADOTROPHIN, CHORIONIC
     Indication: OVULATION INDUCTION
     Route: 065

REACTIONS (5)
  - Urine output decreased [Recovering/Resolving]
  - Product use in unapproved indication [Unknown]
  - Ovarian hyperstimulation syndrome [Unknown]
  - Abdominal distension [Recovering/Resolving]
  - Twin pregnancy [None]

NARRATIVE: CASE EVENT DATE: 20160831
